FAERS Safety Report 23144615 (Version 3)
Quarter: 2024Q1

REPORT INFORMATION
  Report Type: Spontaneous
  Country: US (occurrence: US)
  Receive Date: 20231103
  Receipt Date: 20240105
  Transmission Date: 20240410
  Serious: No
  Sender: FDA-Public Use
  Company Number: US-PFIZER INC-PV202300139157

PATIENT
  Age: 62 Year
  Sex: Female

DRUGS (1)
  1. IBRANCE [Suspect]
     Active Substance: PALBOCICLIB
     Indication: Breast cancer
     Dosage: 100 MG, CYCLIC (DAILY FOR 3 WEEKS ON AND 1 WEEK OFF)

REACTIONS (4)
  - Nausea [Not Recovered/Not Resolved]
  - Hot flush [Not Recovered/Not Resolved]
  - Abdominal pain upper [Recovering/Resolving]
  - Vomiting [Recovering/Resolving]
